FAERS Safety Report 16075767 (Version 2)
Quarter: 2019Q2

REPORT INFORMATION
  Report Type: Spontaneous
  Country: LB (occurrence: LB)
  Receive Date: 20190315
  Receipt Date: 20190401
  Transmission Date: 20190711
  Serious: Yes (Death, Hospitalization, Other)
  Sender: FDA-Public Use
  Company Number: LB-BRISTOL-MYERS SQUIBB COMPANY-BMS-2019-023367

PATIENT
  Age: 72 Year
  Sex: Female

DRUGS (1)
  1. OPDIVO [Suspect]
     Active Substance: NIVOLUMAB
     Indication: LUNG NEOPLASM MALIGNANT
     Dosage: 240 MILLIGRAM, Q2WK
     Route: 042

REACTIONS (3)
  - Malignant neoplasm progression [Fatal]
  - Back pain [Unknown]
  - Pain [Unknown]
